FAERS Safety Report 7123539-7 (Version None)
Quarter: 2010Q4

REPORT INFORMATION
  Report Type: 
  Country: None (occurrence: None)
  Receive Date: 20101125
  Receipt Date: 20101118
  Transmission Date: 20110411
  Serious: Yes (Death, Other)
  Sender: FDA-Public Use
  Company Number: IT-PFIZER INC-2010136403

PATIENT
  Age: 74 Year
  Sex: Female

DRUGS (3)
  1. ZYVOX [Suspect]
     Indication: EMPYEMA
     Dosage: UNK
     Dates: start: 20101016, end: 20101025
  2. DIFLUCAN [Concomitant]
     Dosage: UNK
  3. TAZOCIN [Concomitant]

REACTIONS (2)
  - DEATH [None]
  - SINUS TACHYCARDIA [None]
